FAERS Safety Report 20934168 (Version 1)
Quarter: 2022Q2

REPORT INFORMATION
  Report Type: Spontaneous
  Country: US (occurrence: None)
  Receive Date: 20220607
  Receipt Date: 20220607
  Transmission Date: 20220721
  Serious: No
  Sender: FDA-Public Use
  Company Number: None

PATIENT
  Age: 50 Year
  Sex: Female

DRUGS (2)
  1. KESIMPTA [Suspect]
     Active Substance: OFATUMUMAB
     Indication: Multiple sclerosis
     Dosage: INJECT 20MG SUBCUTANEOULSY AT WEEK 0.1 AND 2 THEN 20MG ONCE A MONTH STARTING AT WEEK 4 AS DIRECTED.?
     Route: 058
     Dates: start: 202104
  2. KESIMPTA [Suspect]
     Active Substance: OFATUMUMAB
     Dosage: OTHER FREQUENCY : MONTHLY WK 4;?
     Route: 058

REACTIONS (1)
  - COVID-19 [None]
